FAERS Safety Report 8127692-8 (Version None)
Quarter: 2012Q1

REPORT INFORMATION
  Report Type: 
  Country: None (occurrence: None)
  Receive Date: 20120210
  Receipt Date: 20120206
  Transmission Date: 20120608
  Serious: Yes (Hospitalization, Other)
  Sender: FDA-Public Use
  Company Number: US-PFIZER INC-2011151529

PATIENT
  Sex: Female

DRUGS (4)
  1. CHANTIX [Suspect]
     Indication: SMOKING CESSATION THERAPY
     Dosage: UNK
     Route: 048
     Dates: start: 20071201, end: 20080110
  2. PERCOCET [Concomitant]
     Indication: PAIN
     Dosage: UNK
     Dates: start: 19910101, end: 20100101
  3. VALIUM [Concomitant]
     Indication: ANXIETY
     Dosage: UNK
     Dates: start: 19910101
  4. DILANTIN [Concomitant]
     Indication: CONVULSION
     Dosage: UNK
     Dates: start: 19910101, end: 20110101

REACTIONS (4)
  - INTENTIONAL OVERDOSE [None]
  - DEPRESSION [None]
  - POST-TRAUMATIC STRESS DISORDER [None]
  - SUICIDE ATTEMPT [None]
